FAERS Safety Report 9763563 (Version 1)
Quarter: 2013Q4

REPORT INFORMATION
  Report Type: Spontaneous
  Country: US (occurrence: US)
  Receive Date: 20131216
  Receipt Date: 20131216
  Transmission Date: 20140711
  Serious: Yes (Other)
  Sender: FDA-Public Use
  Company Number: US-NOVEN-13US008327

PATIENT
  Age: 10 Year
  Sex: Male

DRUGS (3)
  1. DAYTRANA [Suspect]
     Indication: ATTENTION DEFICIT/HYPERACTIVITY DISORDER
     Dosage: 15 MG, UNK
     Route: 062
     Dates: start: 20131201, end: 20131201
  2. DAYTRANA [Suspect]
     Dosage: 10 MG, UNK
     Dates: start: 2011, end: 201311
  3. DAYTRANA [Suspect]
     Dosage: 20 MG, UNK
     Dates: start: 201311, end: 20131201

REACTIONS (4)
  - Suicidal ideation [Recovered/Resolved]
  - Malaise [Recovered/Resolved]
  - Depressed mood [Unknown]
  - Decreased appetite [None]
